FAERS Safety Report 19823941 (Version 1)
Quarter: 2021Q3

REPORT INFORMATION
  Report Type: Spontaneous
  Country: US (occurrence: US)
  Receive Date: 20210913
  Receipt Date: 20210913
  Transmission Date: 20211014
  Serious: Yes (Death, Life-Threatening, Hospitalization)
  Sender: FDA-Public Use
  Company Number: US-ASTRAZENECA-2021A719240

PATIENT
  Age: 672 Month
  Sex: Male
  Weight: 77.1 kg

DRUGS (1)
  1. CALQUENCE [Suspect]
     Active Substance: ACALABRUTINIB
     Indication: CHRONIC LYMPHOCYTIC LEUKAEMIA
     Dosage: 100MG/ML TWO TIMES A DAY
     Route: 048
     Dates: start: 202103, end: 20210806

REACTIONS (4)
  - Brain neoplasm [Fatal]
  - Diarrhoea [Fatal]
  - Cerebrovascular accident [Fatal]
  - Headache [Fatal]

NARRATIVE: CASE EVENT DATE: 202107
